FAERS Safety Report 11840645 (Version 42)
Quarter: 2018Q2

REPORT INFORMATION
  Report Type: Report from Study
  Country: CA (occurrence: CA)
  Receive Date: 20151216
  Receipt Date: 20180502
  Transmission Date: 20180711
  Serious: Yes (Other)
  Sender: FDA-Public Use
  Company Number: CA-SA-2015SA177173

PATIENT
  Age: 37 Year
  Sex: Female
  Weight: 49.89 kg

DRUGS (8)
  1. REACTINE [CETIRIZINE HYDROCHLORIDE] [Concomitant]
     Active Substance: CETIRIZINE HYDROCHLORIDE
     Indication: PREMEDICATION
     Route: 048
     Dates: start: 20151102, end: 20151106
  2. ACYCLOVIR. [Concomitant]
     Active Substance: ACYCLOVIR
     Indication: PREMEDICATION
     Dosage: 35 DAYS
     Route: 048
     Dates: start: 20151102
  3. LEMTRADA [Suspect]
     Active Substance: ALEMTUZUMAB
     Indication: RELAPSING-REMITTING MULTIPLE SCLEROSIS
     Route: 041
     Dates: start: 20151102, end: 20151106
  4. ACYCLOVIR. [Concomitant]
     Active Substance: ACYCLOVIR
     Indication: ANTIVIRAL TREATMENT
     Dosage: 35 DAYS
     Route: 048
     Dates: start: 20151102
  5. SOLU-MEDROL [Concomitant]
     Active Substance: METHYLPREDNISOLONE SODIUM SUCCINATE
     Indication: PREMEDICATION
     Route: 042
     Dates: start: 20151102, end: 20151106
  6. VITAMIN D [Concomitant]
     Active Substance: CHOLECALCIFEROL
     Route: 048
  7. CIMETIDINE [Concomitant]
     Active Substance: CIMETIDINE
     Indication: PREMEDICATION
     Route: 048
     Dates: start: 20151102, end: 20151106
  8. CALCIUM [Concomitant]
     Active Substance: CALCIUM
     Route: 048

REACTIONS (39)
  - Urine abnormality [Recovered/Resolved]
  - Chromaturia [Recovered/Resolved]
  - Pruritus [Recovered/Resolved]
  - Urticaria [Recovered/Resolved]
  - Dyspepsia [Recovered/Resolved]
  - Gait disturbance [Not Recovered/Not Resolved]
  - Fatigue [Not Recovered/Not Resolved]
  - Multiple sclerosis [Not Recovered/Not Resolved]
  - Pain of skin [Not Recovered/Not Resolved]
  - Headache [Recovered/Resolved]
  - General physical health deterioration [Not Recovered/Not Resolved]
  - Urinary sediment present [Not Recovered/Not Resolved]
  - Culture urine positive [Not Recovered/Not Resolved]
  - Staphylococcus test positive [Unknown]
  - Blood urine present [Not Recovered/Not Resolved]
  - Nausea [Recovered/Resolved]
  - Lymphopenia [Not Recovered/Not Resolved]
  - Urinary tract infection staphylococcal [Recovered/Resolved]
  - Malaise [Recovering/Resolving]
  - Urine analysis abnormal [Not Recovered/Not Resolved]
  - Lymphocyte count decreased [Not Recovered/Not Resolved]
  - Lymphocyte percentage decreased [Not Recovered/Not Resolved]
  - Vaginal ulceration [Not Recovered/Not Resolved]
  - Stomatitis [Recovered/Resolved]
  - Bacterial test [Not Recovered/Not Resolved]
  - Red blood cells urine positive [Not Recovered/Not Resolved]
  - White blood cell count decreased [Recovered/Resolved]
  - Nitrite urine present [Recovered/Resolved]
  - Monocyte count increased [Recovered/Resolved]
  - Asthenia [Not Recovered/Not Resolved]
  - White blood cells urine positive [Not Recovered/Not Resolved]
  - Genital herpes [Unknown]
  - Staphylococcus test positive [Recovered/Resolved]
  - Alopecia [Not Recovered/Not Resolved]
  - Urine leukocyte esterase [Not Recovered/Not Resolved]
  - Neutrophil percentage increased [Not Recovered/Not Resolved]
  - Crystalluria [Not Recovered/Not Resolved]
  - Enterococcus test positive [Recovered/Resolved]
  - Insomnia [Recovered/Resolved]

NARRATIVE: CASE EVENT DATE: 2015
